FAERS Safety Report 18944348 (Version 1)
Quarter: 2021Q1

REPORT INFORMATION
  Report Type: Report from Study
  Country: US (occurrence: US)
  Receive Date: 20210226
  Receipt Date: 20210226
  Transmission Date: 20210420
  Serious: No
  Sender: FDA-Public Use
  Company Number: US-ACADIA PHARMACEUTICALS INC.-ACA-2021-PIM-000494

PATIENT
  Sex: Male

DRUGS (17)
  1. VITAMIN D3 [Concomitant]
     Active Substance: CHOLECALCIFEROL
  2. RAYOS [Concomitant]
     Active Substance: PREDNISONE
  3. COVID?19 VACCINE NOS. [Suspect]
     Active Substance: COVID-19 VACCINE NOS
  4. SINEMET [Concomitant]
     Active Substance: CARBIDOPA\LEVODOPA
  5. PLAVIX [Concomitant]
     Active Substance: CLOPIDOGREL BISULFATE
  6. IRON [Concomitant]
     Active Substance: IRON
  7. TESTOSTERONE. [Concomitant]
     Active Substance: TESTOSTERONE
  8. FINASTERIDE. [Concomitant]
     Active Substance: FINASTERIDE
  9. FLOMAX [Concomitant]
     Active Substance: TAMSULOSIN HYDROCHLORIDE
  10. ISRADIPINE. [Concomitant]
     Active Substance: ISRADIPINE
  11. ALPHA LIPOIC ACID [Concomitant]
     Active Substance: .ALPHA.-LIPOIC ACID
  12. MYRBETRIQ [Concomitant]
     Active Substance: MIRABEGRON
  13. ASPIRIN [ACETYLSALICYLIC ACID] [Concomitant]
     Active Substance: ASPIRIN
  14. NUPLAZID [Suspect]
     Active Substance: PIMAVANSERIN TARTRATE
     Indication: PARKINSON^S DISEASE
     Dosage: 34 MILLIGRAM, QD
     Route: 048
     Dates: start: 202008
  15. EXELON [Concomitant]
     Active Substance: RIVASTIGMINE TARTRATE
  16. GAMMAKED [Suspect]
     Active Substance: HUMAN IMMUNOGLOBULIN G
  17. CRESTOR [Concomitant]
     Active Substance: ROSUVASTATIN CALCIUM

REACTIONS (2)
  - Malaise [Unknown]
  - Adverse drug reaction [Unknown]
